FAERS Safety Report 5116791-0 (Version None)
Quarter: 2006Q3

REPORT INFORMATION
  Report Type: 
  Country: None (occurrence: None)
  Receive Date: 20060925
  Receipt Date: 20060914
  Transmission Date: 20061208
  Serious: Yes (Death, Other)
  Sender: FDA-Public Use
  Company Number: 2006111459

PATIENT
  Age: 38 Year
  Sex: Female

DRUGS (3)
  1. SERTRALINE [Suspect]
     Dosage: ORAL
     Route: 048
  2. IBUPROFEN [Suspect]
     Dosage: ORAL
     Route: 048
  3. LAMOTRIGINE [Suspect]

REACTIONS (3)
  - CARDIAC ARREST [None]
  - INTENTIONAL OVERDOSE [None]
  - PULMONARY CONGESTION [None]
